FAERS Safety Report 16628924 (Version 1)
Quarter: 2019Q3

REPORT INFORMATION
  Report Type: Report from Study
  Country: KP (occurrence: KP)
  Receive Date: 20190725
  Receipt Date: 20190725
  Transmission Date: 20191004
  Serious: Yes (Hospitalization)
  Sender: FDA-Public Use
  Company Number: KP-MYLANLABS-2019M1057470

PATIENT
  Age: 55 Year
  Sex: Male
  Weight: 57 kg

DRUGS (14)
  1. CEFTRIAXONE. [Concomitant]
     Active Substance: CEFTRIAXONE
     Indication: PYREXIA
     Dosage: UNK
     Dates: start: 20181119, end: 20181121
  2. COFREL                             /00285103/ [Concomitant]
     Dosage: UNK
     Dates: start: 20181025
  3. CODEINE PHOSPHATE [Concomitant]
     Active Substance: CODEINE PHOSPHATE
     Indication: HAEMOPTYSIS
     Dosage: UNK
     Dates: start: 20181025
  4. XALKORI [Suspect]
     Active Substance: CRIZOTINIB
     Indication: NON-SMALL CELL LUNG CANCER
     Dosage: 250 MILLIGRAM
     Route: 048
     Dates: start: 20180712, end: 20181112
  5. GEMTAN [Suspect]
     Active Substance: GEMCITABINE HYDROCHLORIDE
     Indication: NON-SMALL CELL LUNG CANCER
     Dosage: 2100 MILLIGRAM, QD
     Route: 042
     Dates: start: 20181121
  6. DEXAMETHASONE SODIUM PHOSPHATE. [Concomitant]
     Active Substance: DEXAMETHASONE SODIUM PHOSPHATE
     Indication: CHEMOTHERAPY
     Dosage: UNK
     Dates: start: 20181121, end: 20181122
  7. LASIX [Concomitant]
     Active Substance: FUROSEMIDE
     Indication: CHEMOTHERAPY
     Dosage: UNK
     Dates: start: 20181121, end: 20181121
  8. RULID [Concomitant]
     Active Substance: ROXITHROMYCIN
     Indication: COUGH
     Dosage: UNK
     Dates: start: 20181119, end: 20181130
  9. EMEND [Concomitant]
     Active Substance: APREPITANT
     Indication: CHEMOTHERAPY
     Dosage: UNK
     Dates: start: 20181121, end: 20181123
  10. CISPLATIN. [Suspect]
     Active Substance: CISPLATIN
     Indication: NON-SMALL CELL LUNG CANCER
     Dosage: 117.6 MILLIGRAM, QD
     Route: 042
     Dates: start: 20181121, end: 20181121
  11. TRANSAMIN [Concomitant]
     Active Substance: TRANEXAMIC ACID
     Indication: HAEMOPTYSIS
     Dosage: UNK
     Dates: start: 20181119, end: 20181130
  12. ALOXI [Concomitant]
     Active Substance: PALONOSETRON HYDROCHLORIDE
     Indication: CHEMOTHERAPY
     Dosage: UNK
     Dates: start: 20181121, end: 20181121
  13. MANITOL [Concomitant]
     Active Substance: MANNITOL
     Indication: CHEMOTHERAPY
     Dosage: UNK
     Dates: start: 20181121, end: 20181121
  14. MEIACT [Concomitant]
     Active Substance: CEFDITOREN PIVOXIL
     Indication: INFECTION PROPHYLAXIS
     Dosage: UNK
     Dates: start: 20181122

REACTIONS (1)
  - Gastrointestinal disorder [Recovered/Resolved]

NARRATIVE: CASE EVENT DATE: 20181125
